FAERS Safety Report 12280856 (Version 1)
Quarter: 2016Q2

REPORT INFORMATION
  Report Type: Spontaneous
  Country: US (occurrence: None)
  Receive Date: 20160418
  Receipt Date: 20160418
  Transmission Date: 20160815
  Serious: Yes (Other)
  Sender: FDA-Public Use
  Company Number: None

PATIENT
  Age: 57 Year
  Sex: Male
  Weight: 90.72 kg

DRUGS (5)
  1. FLONASE [Concomitant]
     Active Substance: FLUTICASONE PROPIONATE
  2. LEVOTHYROXINE. [Concomitant]
     Active Substance: LEVOTHYROXINE
  3. PRAVASTATIN [Concomitant]
     Active Substance: PRAVASTATIN\PRAVASTATIN SODIUM
  4. LISINOPRIL. [Concomitant]
     Active Substance: LISINOPRIL
  5. LEVOFLOXACIN, 750 MG [Suspect]
     Active Substance: LEVOFLOXACIN
     Indication: SINUSITIS
     Dosage: 10 TABLET(S) ONCE A DAY TAKEN BY MOUTH
     Route: 048
     Dates: start: 20160330, end: 20160404

REACTIONS (10)
  - Muscle twitching [None]
  - Muscular weakness [None]
  - Tendon pain [None]
  - Burning sensation [None]
  - Neuropathy peripheral [None]
  - Myalgia [None]
  - Arthralgia [None]
  - Palpitations [None]
  - Impaired work ability [None]
  - Joint crepitation [None]

NARRATIVE: CASE EVENT DATE: 20160404
